FAERS Safety Report 5250312-7 (Version None)
Quarter: 2007Q1

REPORT INFORMATION
  Report Type: 
  Country: None (occurrence: None)
  Receive Date: 20070228
  Receipt Date: 20060323
  Transmission Date: 20070707
  Serious: No
  Sender: FDA-Public Use
  Company Number: US-GLAXOSMITHKLINE-A0598803A

PATIENT
  Age: 35 Year
  Sex: Female

DRUGS (2)
  1. LAMICTAL [Suspect]
     Indication: DRUG USE FOR UNKNOWN INDICATION
     Dosage: 75MG PER DAY
     Route: 048
     Dates: start: 20060101
  2. ALLEGRA [Concomitant]

REACTIONS (1)
  - MUSCLE TWITCHING [None]
